FAERS Safety Report 20199557 (Version 1)
Quarter: 2021Q4

REPORT INFORMATION
  Report Type: Spontaneous
  Country: US (occurrence: US)
  Receive Date: 20211217
  Receipt Date: 20211217
  Transmission Date: 20220303
  Serious: No
  Sender: FDA-Public Use
  Company Number: US-ORG100016242-2021000309

PATIENT
  Age: 67 Year
  Sex: Female

DRUGS (1)
  1. EXPAREL [Suspect]
     Active Substance: BUPIVACAINE
     Dosage: UNSPECIFIED DOSE, 1ST INJECTION ON APR2021, 2ND INJECTION A FEW WEEKS AGO IN JUN2021.

REACTIONS (4)
  - Formication [Not Recovered/Not Resolved]
  - Electric shock sensation [Not Recovered/Not Resolved]
  - Off label use [Unknown]
  - Muscle twitching [Not Recovered/Not Resolved]
